FAERS Safety Report 9883233 (Version 1)
Quarter: 2014Q1

REPORT INFORMATION
  Report Type: Spontaneous
  Country: US (occurrence: US)
  Receive Date: 20140209
  Receipt Date: 20140209
  Transmission Date: 20141002
  Serious: Yes (Other)
  Sender: FDA-Public Use
  Company Number: PHHY2014US012842

PATIENT
  Age: 19 Year
  Sex: Female

DRUGS (6)
  1. CICLOSPORIN [Suspect]
     Indication: IMMUNOSUPPRESSION
     Dosage: 130 MG, BID
  2. CICLOSPORIN [Suspect]
     Dosage: 140 MG, BID
  3. TERBUTALINE [Suspect]
     Route: 048
  4. CARBENICILLIN INDANYL SODIUM [Suspect]
     Indication: ASYMPTOMATIC BACTERIURIA
  5. METHYLPREDNISOLONE [Suspect]
     Dosage: 8 MG, UNK
  6. BROMOCRIPTINE MESYLATE [Concomitant]

REACTIONS (8)
  - Pre-eclampsia [Unknown]
  - Proteinuria [Unknown]
  - Blood pressure diastolic increased [Unknown]
  - Blood pressure increased [Unknown]
  - Premature labour [Unknown]
  - Asymptomatic bacteriuria [Unknown]
  - Breech presentation [Unknown]
  - Maternal exposure during delivery [Unknown]
